FAERS Safety Report 9773907 (Version 1)
Quarter: 2013Q4

REPORT INFORMATION
  Report Type: Spontaneous
  Country: AU (occurrence: AU)
  Receive Date: 20131220
  Receipt Date: 20131220
  Transmission Date: 20140711
  Serious: Yes (Life-Threatening, Hospitalization, Other)
  Sender: FDA-Public Use
  Company Number: AU-009507513-1312AUS008135

PATIENT
  Age: 76 Year
  Sex: Male

DRUGS (6)
  1. MIRTAZAPINE [Suspect]
     Indication: DEPRESSION
     Dosage: UNK UNK, ONCE
     Route: 048
     Dates: start: 20131113, end: 20131114
  2. DUTASTERIDE [Suspect]
  3. TAMSULOSIN HYDROCHLORIDE [Suspect]
  4. FLUVASTATIN SODIUM [Suspect]
  5. LISINOPRIL [Suspect]
  6. WARFARIN SODIUM [Suspect]

REACTIONS (2)
  - Renal failure acute [Recovering/Resolving]
  - Obstructive uropathy [Recovering/Resolving]
